FAERS Safety Report 8346459-9 (Version None)
Quarter: 2012Q2

REPORT INFORMATION
  Report Type: 
  Country: None (occurrence: None)
  Receive Date: 20120509
  Receipt Date: 20120507
  Transmission Date: 20120825
  Serious: Yes (Other)
  Sender: FDA-Public Use
  Company Number: US-PFIZER INC-2012111395

PATIENT
  Sex: Female
  Weight: 86.168 kg

DRUGS (2)
  1. LYRICA [Suspect]
     Indication: NERVE INJURY
  2. LYRICA [Suspect]
     Indication: HERPES ZOSTER
     Dosage: 150 MG (ONE 50MG IN MORNING AND TWO 50MG IN EVENING)
     Route: 048

REACTIONS (1)
  - FACIAL PAIN [None]
